FAERS Safety Report 7589714-2 (Version None)
Quarter: 2011Q3

REPORT INFORMATION
  Report Type: 
  Country: None (occurrence: None)
  Receive Date: 20110705
  Receipt Date: 20110629
  Transmission Date: 20111222
  Serious: Yes (Hospitalization, Other)
  Sender: FDA-Public Use
  Company Number: US-ELI_LILLY_AND_COMPANY-US201002003757

PATIENT
  Sex: Male
  Weight: 113.38 kg

DRUGS (5)
  1. BYETTA [Suspect]
     Dosage: UNK, UNKNOWN
     Route: 065
     Dates: start: 20060701, end: 20070701
  2. ZOCOR [Concomitant]
     Indication: BLOOD CHOLESTEROL INCREASED
  3. TYLENOL                                 /SCH/ [Concomitant]
     Indication: ARTHRITIS
  4. LASIX [Concomitant]
     Indication: FLUID RETENTION
  5. ZOLOFT [Concomitant]

REACTIONS (1)
  - PANCREATITIS [None]
